FAERS Safety Report 13699569 (Version 1)
Quarter: 2017Q2

REPORT INFORMATION
  Report Type: Report from Study
  Country: None (occurrence: BR)
  Receive Date: 20170629
  Receipt Date: 20170629
  Transmission Date: 20170830
  Serious: Yes (Other)
  Sender: FDA-Public Use
  Company Number: BR-ABBVIE-17K-020-2022355-00

PATIENT
  Sex: Female
  Weight: 63 kg

DRUGS (3)
  1. HUMIRA [Suspect]
     Active Substance: ADALIMUMAB
     Indication: COLITIS ULCERATIVE
     Route: 058
     Dates: start: 20150724, end: 20170502
  2. TROMETHAMINE. [Concomitant]
     Active Substance: TROMETHAMINE
     Indication: UVEITIS
     Route: 047
     Dates: start: 201704
  3. TROMETHAMINE. [Concomitant]
     Active Substance: TROMETHAMINE
     Indication: PROPHYLAXIS

REACTIONS (7)
  - Uterine leiomyoma [Not Recovered/Not Resolved]
  - Joint swelling [Not Recovered/Not Resolved]
  - Pain in extremity [Not Recovered/Not Resolved]
  - Menorrhagia [Not Recovered/Not Resolved]
  - Blood cholesterol increased [Not Recovered/Not Resolved]
  - Arthralgia [Not Recovered/Not Resolved]
  - Peripheral swelling [Not Recovered/Not Resolved]

NARRATIVE: CASE EVENT DATE: 2016
